FAERS Safety Report 5085861-8 (Version None)
Quarter: 2006Q3

REPORT INFORMATION
  Report Type: 
  Country: None (occurrence: None)
  Receive Date: 20060817
  Receipt Date: 20050712
  Transmission Date: 20061208
  Serious: Yes (Hospitalization)
  Sender: FDA-Public Use
  Company Number: I03-341-029

PATIENT
  Age: 77 Year
  Sex: Male
  Weight: 96.5 kg

DRUGS (6)
  1. VELCADE [Suspect]
     Indication: MANTLE CELL LYMPHOMA
     Dosage: 1.30 MG/M2, UNK, IV BOLUS
     Route: 040
     Dates: start: 20030224, end: 20030320
  2. GLYBURIDE [Concomitant]
  3. ACETYLSALICLIC ACID (ACETYLSALICYLIC ACID) [Concomitant]
  4. ATENOLOL [Concomitant]
  5. COZAAR [Concomitant]
  6. LIPITOR [Concomitant]

REACTIONS (6)
  - BLOOD CREATININE INCREASED [None]
  - BLOOD POTASSIUM INCREASED [None]
  - CARDIAC FAILURE CONGESTIVE [None]
  - DRUG TOXICITY [None]
  - FATIGUE [None]
  - HYPOGLYCAEMIA [None]
